FAERS Safety Report 4982763-X (Version None)
Quarter: 2006Q2

REPORT INFORMATION
  Report Type: 
  Country: None (occurrence: None)
  Receive Date: 20060425
  Receipt Date: 20050606
  Transmission Date: 20061013
  Serious: Yes (Hospitalization)
  Sender: FDA-Public Use
  Company Number: US-MERCK-0506USA01143

PATIENT
  Age: 54 Year
  Sex: Female
  Weight: 80 kg

DRUGS (28)
  1. VIOXX [Suspect]
     Indication: PAIN
     Route: 048
     Dates: start: 20001129, end: 20030403
  2. OXYCONTIN [Concomitant]
     Route: 065
  3. VERAPAMIL [Concomitant]
     Route: 065
  4. TIZANIDINE HYDROCHLORIDE [Concomitant]
     Route: 065
  5. AMBIEN [Concomitant]
     Route: 065
  6. PAXIL [Concomitant]
     Route: 065
  7. SINGULAIR [Concomitant]
     Indication: ASTHMA
     Route: 065
  8. MACROBID [Concomitant]
     Route: 065
  9. PRILOSEC [Concomitant]
     Route: 065
  10. UNIVASC [Concomitant]
     Route: 065
  11. DURAGESIC-100 [Concomitant]
     Route: 065
  12. DIPHENOXYLATE [Concomitant]
     Route: 065
  13. ULTRACET [Concomitant]
     Route: 065
  14. ZANAFLEX [Concomitant]
     Route: 065
  15. ZYRTEC [Concomitant]
     Route: 065
  16. NEURONTIN [Concomitant]
     Route: 065
  17. PHENERGAN (PROMETHAZINE HYDROCHLORIDE) [Concomitant]
     Route: 065
  18. TRIMETOPRIM-SULFA [Concomitant]
     Route: 065
  19. CELEBREX [Concomitant]
     Route: 065
     Dates: start: 20020301, end: 20020801
  20. XANAX [Concomitant]
     Indication: ANXIETY
     Route: 065
  21. LASIX [Concomitant]
     Indication: CARDIAC FAILURE CONGESTIVE
     Route: 065
     Dates: start: 20040301, end: 20060301
  22. COREG [Concomitant]
     Indication: CARDIAC FAILURE CONGESTIVE
     Route: 065
     Dates: start: 20040301
  23. PRINIVIL [Concomitant]
     Indication: CARDIAC FAILURE CONGESTIVE
     Route: 065
  24. SEROQUEL [Concomitant]
     Indication: SLEEP DISORDER
     Route: 065
  25. DIGITEK [Concomitant]
     Indication: CARDIAC FAILURE CONGESTIVE
     Route: 065
  26. ALTACE [Concomitant]
     Route: 065
     Dates: start: 20040301, end: 20060301
  27. ASPIRIN [Concomitant]
     Indication: RHEUMATOID ARTHRITIS
     Route: 065
     Dates: start: 20040301
  28. PERCOCET [Concomitant]
     Indication: PAIN
     Route: 065
     Dates: start: 20040301, end: 20060301

REACTIONS (11)
  - ANXIETY [None]
  - ASTHMA [None]
  - CARDIAC DISORDER [None]
  - CARDIAC FAILURE CONGESTIVE [None]
  - GASTRIC HAEMORRHAGE [None]
  - GASTRIC ULCER PERFORATION [None]
  - HYPERTENSION [None]
  - INJURY [None]
  - INTERVERTEBRAL DISC PROTRUSION [None]
  - MYOCARDIAL INFARCTION [None]
  - SLEEP DISORDER [None]
